FAERS Safety Report 9264408 (Version 2)
Quarter: 2013Q2

REPORT INFORMATION
  Report Type: Spontaneous
  Country: NL (occurrence: NL)
  Receive Date: 20130430
  Receipt Date: 20130522
  Transmission Date: 20140414
  Serious: Yes (Hospitalization)
  Sender: FDA-Public Use
  Company Number: NL-B.I. PHARMACEUTICALS,INC./RIDGEFIELD-2013-NL-00346NL

PATIENT
  Age: 65 Year
  Sex: Female

DRUGS (10)
  1. PRADAXA [Suspect]
     Indication: ATRIAL FIBRILLATION
     Dosage: 300 MG
  2. AMLODIPINE [Concomitant]
     Indication: ATRIAL FIBRILLATION
     Route: 048
  3. AMLODIPINE [Concomitant]
     Indication: HYPERTENSION
  4. BISOPROLOL [Concomitant]
     Indication: ATRIAL FIBRILLATION
     Route: 048
  5. BISOPROLOL [Concomitant]
     Indication: HYPERTENSION
  6. HYDROCHLOORTHIAZIDE [Concomitant]
     Indication: ATRIAL FIBRILLATION
     Route: 048
  7. HYDROCHLOORTHIAZIDE [Concomitant]
     Indication: HYPERTENSION
  8. PERINDOPRIL [Concomitant]
     Indication: ATRIAL FIBRILLATION
     Route: 048
  9. PERINDOPRIL [Concomitant]
     Indication: HYPERTENSION
  10. SULFAZALAZINE [Concomitant]

REACTIONS (2)
  - Ischaemic cerebral infarction [Recovered/Resolved with Sequelae]
  - Hemiparesis [Recovered/Resolved with Sequelae]
